FAERS Safety Report 10066184 (Version 1)
Quarter: 2014Q2

REPORT INFORMATION
  Report Type: Spontaneous
  Country: US (occurrence: None)
  Receive Date: 20140401
  Receipt Date: 20140401
  Transmission Date: 20141212
  Serious: Yes (Other)
  Sender: FDA-Public Use
  Company Number: PHEH2013US015918

PATIENT
  Sex: Female

DRUGS (1)
  1. TASIGNA (AMN107) [Suspect]
     Indication: CHRONIC MYELOID LEUKAEMIA
     Route: 048
     Dates: start: 201207, end: 201307

REACTIONS (1)
  - Pericarditis [None]
